FAERS Safety Report 10232308 (Version 1)
Quarter: 2014Q2

REPORT INFORMATION
  Report Type: Spontaneous
  Country: CN (occurrence: CN)
  Receive Date: 20140612
  Receipt Date: 20140612
  Transmission Date: 20141212
  Serious: Yes (Other)
  Sender: FDA-Public Use
  Company Number: CN-ROCHE-1417037

PATIENT
  Age: 54 Year
  Sex: Female
  Weight: 41 kg

DRUGS (2)
  1. XELODA [Suspect]
     Indication: GASTRIC NEOPLASM
     Route: 048
     Dates: start: 20121220, end: 20130308
  2. OXALIPLATIN [Suspect]
     Indication: GASTRIC NEOPLASM
     Route: 041
     Dates: start: 20121220, end: 20121220

REACTIONS (1)
  - Hepatic function abnormal [Recovering/Resolving]
